FAERS Safety Report 25880718 (Version 1)
Quarter: 2025Q4

REPORT INFORMATION
  Report Type: Spontaneous
  Country: CN (occurrence: CN)
  Receive Date: 20251004
  Receipt Date: 20251004
  Transmission Date: 20260118
  Serious: Yes (Life-Threatening, Hospitalization)
  Sender: AMGEN
  Company Number: CN-AMGEN-CHNSP2025196237

PATIENT
  Age: 13 Year
  Sex: Female

DRUGS (3)
  1. BLINCYTO [Suspect]
     Active Substance: BLINATUMOMAB
     Indication: Acute lymphocytic leukaemia
     Dosage: 5.92 MICROGRAM, DRIP
     Route: 040
     Dates: start: 20250407, end: 20250408
  2. BLINCYTO [Suspect]
     Active Substance: BLINATUMOMAB
     Dosage: 17.78 MICROGRAM, DRIP
     Route: 040
     Dates: start: 20250409, end: 20250412
  3. BLINCYTO [Suspect]
     Active Substance: BLINATUMOMAB
     Dosage: UNK, RESUMED
     Route: 040
     Dates: start: 20250418

REACTIONS (3)
  - Vomiting [Recovering/Resolving]
  - Cytokine release syndrome [Recovering/Resolving]
  - Seizure [Recovering/Resolving]

NARRATIVE: CASE EVENT DATE: 20250408
